FAERS Safety Report 8967664 (Version 1)
Quarter: 2012Q4

REPORT INFORMATION
  Report Type: Spontaneous
  Country: US (occurrence: None)
  Receive Date: 20121206
  Receipt Date: 20121206
  Transmission Date: 20130627
  Serious: Yes (Life-Threatening, Hospitalization)
  Sender: FDA-Public Use
  Company Number: 101030-009568

PATIENT
  Sex: Male

DRUGS (1)
  1. RECLAIM REVOLUTIONARY ANTI-AGING DAY CREAM SPF 15 [Suspect]
     Dosage: Twice daily dermal
     Dates: start: 20100914

REACTIONS (5)
  - Lip swelling [None]
  - Swollen tongue [None]
  - Throat tightness [None]
  - Pharyngeal oedema [None]
  - Anaphylactic reaction [None]
